FAERS Safety Report 5960919-7 (Version None)
Quarter: 2008Q4

REPORT INFORMATION
  Report Type: 
  Country: None (occurrence: None)
  Receive Date: 20081121
  Receipt Date: 20081114
  Transmission Date: 20090506
  Serious: Yes (Other)
  Sender: FDA-Public Use
  Company Number: AU-JNJFOC-20081101848

PATIENT
  Sex: Male

DRUGS (4)
  1. RISPERDAL CONSTA [Suspect]
     Indication: SCHIZOPHRENIA
     Route: 030
  2. VALPROATE SODIUM [Concomitant]
     Indication: PSYCHOTIC DISORDER
     Route: 048
  3. NITRAZEPAM [Concomitant]
     Indication: PSYCHOTIC DISORDER
     Dosage: NOCTE
     Route: 048
  4. SEROQUEL [Concomitant]
     Indication: PSYCHOTIC DISORDER
     Route: 048

REACTIONS (1)
  - BLOOD CREATINE PHOSPHOKINASE INCREASED [None]
